FAERS Safety Report 13111997 (Version 3)
Quarter: 2021Q4

REPORT INFORMATION
  Report Type: Other
  Country: AT (occurrence: None)
  Receive Date: 20170113
  Receipt Date: 20211105
  Transmission Date: 20220303
  Serious: Yes (Other)
  Sender: FDA-Public Use
  Company Number: AT-ROCHE-1878592

PATIENT
  Sex: Female

DRUGS (2)
  1. CAPECITABINE [Suspect]
     Active Substance: CAPECITABINE
     Indication: Breast cancer metastatic
     Dosage: ON DAY 1 AND DAY 14 OF A 3-WEEK CYCLE
     Route: 048
  2. BENDAMUSTINE [Suspect]
     Active Substance: BENDAMUSTINE
     Indication: Breast cancer metastatic
     Dosage: ON DAY 1 AND DAY 8 OF A 3-WEEK CYCLE
     Route: 042

REACTIONS (22)
  - Nausea [Unknown]
  - Vomiting [Unknown]
  - Stomatitis [Unknown]
  - Palmar-plantar erythrodysaesthesia syndrome [Unknown]
  - Fatigue [Unknown]
  - Diarrhoea [Unknown]
  - Musculoskeletal pain [Unknown]
  - Dyspnoea [Unknown]
  - Pulmonary embolism [Unknown]
  - Upper respiratory tract infection [Unknown]
  - Device related infection [Unknown]
  - Hepatic failure [Unknown]
  - Leukopenia [Unknown]
  - Neutropenia [Unknown]
  - Polyneuropathy [Unknown]
  - Gastroenteritis [Unknown]
  - Angina pectoris [Unknown]
  - Ascites [Unknown]
  - Atrial fibrillation [Unknown]
  - Skin fissures [Unknown]
  - Toothache [Unknown]
  - Tooth infection [Unknown]
